FAERS Safety Report 9086214 (Version 1)
Quarter: 2013Q1

REPORT INFORMATION
  Report Type: Report from Study
  Country: US (occurrence: US)
  Receive Date: 20130131
  Receipt Date: 20130131
  Transmission Date: 20140127
  Serious: No
  Sender: FDA-Public Use
  Company Number: US-ABBOTT-12P-163-0992947-00

PATIENT
  Age: 32 Year
  Sex: Female

DRUGS (4)
  1. HUMIRA [Suspect]
     Indication: CROHN^S DISEASE
     Route: 058
     Dates: start: 200805, end: 2011
  2. HUMIRA [Suspect]
     Route: 058
     Dates: start: 2012
  3. CIPRO [Concomitant]
     Indication: PRODUCT USED FOR UNKNOWN INDICATION
  4. ORTHO-TRI-CYCLEN [Concomitant]
     Indication: PRODUCT USED FOR UNKNOWN INDICATION

REACTIONS (2)
  - Injection site mass [Recovering/Resolving]
  - Injection site pain [Recovering/Resolving]
